FAERS Safety Report 10619216 (Version 1)
Quarter: 2014Q4

REPORT INFORMATION
  Report Type: Spontaneous
  Country: US (occurrence: US)
  Receive Date: 20141202
  Receipt Date: 20141202
  Transmission Date: 20150529
  Serious: Yes (Other)
  Sender: FDA-Public Use
  Company Number: US-PFIZER INC-2014325618

PATIENT
  Age: 80 Year
  Sex: Male
  Weight: 95 kg

DRUGS (3)
  1. CELEBREX [Concomitant]
     Active Substance: CELECOXIB
     Dosage: UNK, 4X/DAY (2 IN THE MORNING AND 2 IN THE AFTERNOON)
  2. GABAPENTIN. [Suspect]
     Active Substance: GABAPENTIN
     Dosage: 300 MG, 3X/DAY
  3. GABAPENTIN. [Suspect]
     Active Substance: GABAPENTIN
     Dosage: 300 MG, 4X/DAY
     Dates: start: 1998

REACTIONS (5)
  - Seizure [Unknown]
  - Peripheral swelling [Not Recovered/Not Resolved]
  - Neuralgia [Unknown]
  - Drug ineffective [Unknown]
  - Poor peripheral circulation [Unknown]
